FAERS Safety Report 6616692-2 (Version None)
Quarter: 2010Q1

REPORT INFORMATION
  Report Type: 
  Country: None (occurrence: None)
  Receive Date: 20100305
  Receipt Date: 20100224
  Transmission Date: 20100710
  Serious: Yes (Hospitalization)
  Sender: FDA-Public Use
  Company Number: US-AMGEN-QUU395066

PATIENT
  Sex: Female

DRUGS (12)
  1. SENSIPAR [Suspect]
     Indication: HYPERPARATHYROIDISM SECONDARY
  2. SENSIPAR [Suspect]
     Indication: RENAL FAILURE CHRONIC
  3. EPOGEN [Suspect]
     Indication: DIALYSIS
     Route: 042
     Dates: start: 20060701
  4. CLONIDINE [Concomitant]
  5. IMODIUM [Concomitant]
  6. LIPITOR [Concomitant]
  7. LISINOPRIL [Concomitant]
  8. LORTAB [Concomitant]
  9. NEXIUM [Concomitant]
  10. PLAVIX [Concomitant]
  11. ACETAMINOPHEN [Concomitant]
  12. ZOLOFT [Concomitant]

REACTIONS (4)
  - BLOOD CALCIUM INCREASED [None]
  - BLOOD PARATHYROID HORMONE INCREASED [None]
  - ENTERAL NUTRITION [None]
  - MYOCARDIAL INFARCTION [None]
